FAERS Safety Report 8185870-6 (Version None)
Quarter: 2012Q1

REPORT INFORMATION
  Report Type: 
  Country: None (occurrence: None)
  Receive Date: 20120305
  Receipt Date: 20120228
  Transmission Date: 20120608
  Serious: Yes (Life-Threatening)
  Sender: FDA-Public Use
  Company Number: IT-ASTRAZENECA-2012SE13929

PATIENT
  Age: 26510 Day
  Sex: Female

DRUGS (3)
  1. OLMESARTAN MEDOXOMIL [Suspect]
     Indication: HYPERTENSION
     Route: 048
     Dates: start: 20110101
  2. ARIMIDEX [Suspect]
     Indication: BREAST CANCER
     Route: 048
     Dates: start: 20110101
  3. DIETARY SUPPLEMENT [Suspect]
     Indication: CONSTIPATION
     Route: 048
     Dates: start: 20120101

REACTIONS (3)
  - HAEMOSTASIS [None]
  - HEPATITIS ACUTE [None]
  - HYPERAMMONAEMIA [None]
